FAERS Safety Report 26011467 (Version 2)
Quarter: 2025Q4

REPORT INFORMATION
  Report Type: Spontaneous
  Country: EU (occurrence: EU)
  Receive Date: 20251107
  Receipt Date: 20251118
  Transmission Date: 20260118
  Serious: No
  Sender: ABBVIE
  Company Number: EU-ABBVIE-6531726

PATIENT
  Age: 60 Year
  Sex: Female

DRUGS (5)
  1. MIRVETUXIMAB SORAVTANSINE-GYNX [Suspect]
     Active Substance: MIRVETUXIMAB SORAVTANSINE-GYNX
     Indication: Ovarian cancer
     Dosage: CYCLE 1??LAST ADMINISTRATION DATE: 2025
     Route: 042
     Dates: start: 202507
  2. MIRVETUXIMAB SORAVTANSINE-GYNX [Suspect]
     Active Substance: MIRVETUXIMAB SORAVTANSINE-GYNX
     Indication: Ovarian cancer
     Dosage: CYCLE 2 ?FIRST ADMINISTRATION DATE 2025?LAST ADMINISTRATION DATE 2025
     Route: 042
  3. MIRVETUXIMAB SORAVTANSINE-GYNX [Suspect]
     Active Substance: MIRVETUXIMAB SORAVTANSINE-GYNX
     Indication: Ovarian cancer
     Dosage: CYCLE 3?FIRST ADMINISTRATION DATE 2025?LAST ADMINISTRATION DATE 2025
     Route: 042
  4. MIRVETUXIMAB SORAVTANSINE-GYNX [Suspect]
     Active Substance: MIRVETUXIMAB SORAVTANSINE-GYNX
     Indication: Ovarian cancer
     Dosage: CYCLE 4?FIRST ADMINISTRATION DATE 2025?LAST ADMINISTRATION DATE 2025
     Route: 042
  5. MIRVETUXIMAB SORAVTANSINE-GYNX [Suspect]
     Active Substance: MIRVETUXIMAB SORAVTANSINE-GYNX
     Indication: Ovarian cancer
     Dosage: DOSE REDUCTION ?CYCLE 5?FIRST ADMINISTRATION DATE 2025
     Route: 042

REACTIONS (2)
  - Dry mouth [Unknown]
  - Keratitis [Unknown]

NARRATIVE: CASE EVENT DATE: 20250701
